FAERS Safety Report 5279060-4 (Version None)
Quarter: 2007Q1

REPORT INFORMATION
  Report Type: 
  Country: None (occurrence: None)
  Receive Date: 20070327
  Receipt Date: 20070327
  Transmission Date: 20070707
  Serious: Yes (Hospitalization)
  Sender: FDA-Public Use
  Company Number: None

PATIENT
  Age: 81 Year
  Sex: Male
  Weight: 59.8748 kg

DRUGS (9)
  1. AMPICILLIN SODIUM [Suspect]
     Indication: DIVERTICULITIS
     Dosage: 500 MG  BID   PO
     Route: 048
     Dates: start: 20070222, end: 20070228
  2. VASOTEC [Concomitant]
  3. ACIDOPHYLLIS [Concomitant]
  4. LEXAPRO [Concomitant]
  5. PRILOSEC [Concomitant]
  6. SKELAXIN [Concomitant]
  7. ULTRAM [Concomitant]
  8. ARICEPT [Concomitant]
  9. MEGACE [Concomitant]

REACTIONS (1)
  - CLOSTRIDIUM DIFFICILE COLITIS [None]
